FAERS Safety Report 25602930 (Version 6)
Quarter: 2025Q4

REPORT INFORMATION
  Report Type: Spontaneous
  Country: EU (occurrence: EU)
  Receive Date: 20250724
  Receipt Date: 20251027
  Transmission Date: 20260118
  Serious: Yes (Other)
  Sender: ABBVIE
  Company Number: EU-ROCHE-10000336972

PATIENT
  Age: 76 Year
  Sex: Male
  Weight: 74.5 kg

DRUGS (9)
  1. VENETOCLAX [Suspect]
     Active Substance: VENETOCLAX
     Indication: Mantle cell lymphoma
     Dosage: ON 01-JUL-2025, HE RECEIVED HIS MOST RECENT DOSE OF VENETOCLAX PRIOR TO CYTOLISIS AND CHOLESTASIS...
     Route: 048
     Dates: start: 20250605
  2. VENETOCLAX [Suspect]
     Active Substance: VENETOCLAX
     Indication: Mantle cell lymphoma
     Dosage: ON 01-JUL-2025, HE RECEIVED HIS MOST RECENT DOSE OF VENETOCLAX PRIOR TO CYTOLISIS AND CHOLESTASIS...
     Route: 048
     Dates: start: 20250605
  3. RAMIPRIL [Concomitant]
     Active Substance: RAMIPRIL
     Indication: Prophylaxis
     Dates: start: 20250515
  4. Lariza [Concomitant]
     Indication: Prophylaxis
     Dates: start: 20250602
  5. OBINUTUZUMAB [Suspect]
     Active Substance: OBINUTUZUMAB
     Indication: Mantle cell lymphoma
     Dosage: ON 14-MAY-2025, HE RECEIVED HIS MOST RECENT DOSE OF OBINUTUZUMAB PRIOR TO CYTOLISIS AND CHOLESTASIS.
     Route: 042
     Dates: start: 20250513
  6. BACTRIM [Concomitant]
     Active Substance: SULFAMETHOXAZOLE\TRIMETHOPRIM
     Indication: Prophylaxis
     Dosage: 800/160MG
     Dates: start: 20250514, end: 20250701
  7. GLOFITAMAB [Suspect]
     Active Substance: GLOFITAMAB
     Indication: Mantle cell lymphoma
     Dosage: ON 03-JUL-2025, HE RECEIVED HIS MOST RECENT DOSE OF GLOFITAMAB PRIOR TO CHOLESTASIS.?ON 24-JUN-20...
     Route: 042
     Dates: start: 20250520
  8. VALACYCLOVIR HYDROCHLORIDE [Concomitant]
     Active Substance: VALACYCLOVIR HYDROCHLORIDE
     Indication: Prophylaxis
     Dates: start: 20250528, end: 20250701
  9. ELIQUIS [Concomitant]
     Active Substance: APIXABAN
     Indication: Atrial fibrillation

REACTIONS (2)
  - Cholestasis [Recovered/Resolved]
  - Hepatic cytolysis [Not Recovered/Not Resolved]

NARRATIVE: CASE EVENT DATE: 20250707
